FAERS Safety Report 10578991 (Version 3)
Quarter: 2014Q4

REPORT INFORMATION
  Report Type: Spontaneous
  Country: BR (occurrence: BR)
  Receive Date: 20141112
  Receipt Date: 20141118
  Transmission Date: 20150529
  Serious: Yes (Other)
  Sender: FDA-Public Use
  Company Number: BR-SA-2014SA154080

PATIENT
  Age: 6 Year
  Sex: Female

DRUGS (2)
  1. ALLEGRA [Suspect]
     Active Substance: FEXOFENADINE HYDROCHLORIDE
     Indication: RHINITIS ALLERGIC
     Dosage: FORM: PEDIATRIC SUSPENSION
     Route: 048
     Dates: start: 20141001, end: 20141105
  2. BUDESONIDE. [Concomitant]
     Active Substance: BUDESONIDE
     Indication: RHINITIS
     Dosage: TAKEN FROM: 01-OCT
     Route: 055

REACTIONS (2)
  - Pyrexia [Recovered/Resolved]
  - Seizure [Recovered/Resolved]
